FAERS Safety Report 8189697-0 (Version None)
Quarter: 2012Q1

REPORT INFORMATION
  Report Type: 
  Country: None (occurrence: None)
  Receive Date: 20120305
  Receipt Date: 20120223
  Transmission Date: 20120608
  Serious: Yes (Other)
  Sender: FDA-Public Use
  Company Number: AUR-APL-2012-01122

PATIENT
  Age: 78 Year
  Sex: Female

DRUGS (4)
  1. VANCOMYCIN [Suspect]
     Indication: PNEUMONIA
     Dosage: UNKNOWN
  2. VANCOMYCIN [Suspect]
     Indication: ACUTE RESPIRATORY DISTRESS SYNDROME
     Dosage: UNKNOWN
  3. PIPERACILLIN AND TAZOBACTAM [Suspect]
     Indication: PNEUMONIA
     Dosage: UNKNOWN
  4. PIPERACILLIN AND TAZOBACTAM [Suspect]
     Indication: ACUTE RESPIRATORY DISTRESS SYNDROME
     Dosage: UNKNOWN

REACTIONS (1)
  - LINEAR IGA DISEASE [None]
